FAERS Safety Report 7404977-1 (Version None)
Quarter: 2011Q2

REPORT INFORMATION
  Report Type: 
  Country: None (occurrence: None)
  Receive Date: 20110411
  Receipt Date: 20100225
  Transmission Date: 20111010
  Serious: No
  Sender: FDA-Public Use
  Company Number: US-KINGPHARMUSA00001-K201000257

PATIENT
  Sex: Male
  Weight: 84.354 kg

DRUGS (1)
  1. THROMBIN-JMI [Suspect]
     Indication: CORONARY ARTERY BYPASS
     Dosage: 5000 U, UNK
     Dates: start: 20070305, end: 20070305

REACTIONS (3)
  - WOUND DRAINAGE [None]
  - POSTOPERATIVE WOUND INFECTION [None]
  - WOUND INFECTION STAPHYLOCOCCAL [None]
